FAERS Safety Report 9982107 (Version 2)
Quarter: 2014Q1

REPORT INFORMATION
  Report Type: Report from Study
  Country: US (occurrence: US)
  Receive Date: 20140307
  Receipt Date: 20140307
  Transmission Date: 20141002
  Serious: No
  Sender: FDA-Public Use
  Company Number: US-ABBVIE-13P-163-1169412-00

PATIENT
  Age: 81 Year
  Sex: Female
  Weight: 79 kg

DRUGS (19)
  1. HUMIRA [Suspect]
     Indication: COLITIS ULCERATIVE
     Dosage: LOADING DOSE
     Dates: start: 20131024, end: 20131024
  2. HUMIRA [Suspect]
     Dates: start: 20131107, end: 20131107
  3. HUMIRA [Suspect]
  4. COUMADIN [Concomitant]
     Indication: THROMBOSIS
  5. COUMADIN [Concomitant]
  6. UNKNOWN MEDICATION [Concomitant]
     Indication: CARDIAC DISORDER
  7. ASACOL HD [Concomitant]
     Indication: COLITIS ULCERATIVE
  8. METOPROLOL [Concomitant]
     Indication: HYPERTENSION
  9. SYNTHROID [Concomitant]
     Indication: HYPOTHYROIDISM
  10. LASIX [Concomitant]
     Indication: FLUID RETENTION
     Dosage: DAILY,TAKES ONLY ONCE IN A WHILE
  11. PROPAFENONE [Concomitant]
     Indication: ARRHYTHMIA
  12. MESALAMINE [Concomitant]
     Indication: PRODUCT USED FOR UNKNOWN INDICATION
  13. ATENOLOL [Concomitant]
     Indication: PRODUCT USED FOR UNKNOWN INDICATION
  14. XARELTO [Concomitant]
     Indication: PRODUCT USED FOR UNKNOWN INDICATION
  15. LOSARTAN [Concomitant]
     Indication: PRODUCT USED FOR UNKNOWN INDICATION
  16. MINOCYCLINE [Concomitant]
     Indication: PRODUCT USED FOR UNKNOWN INDICATION
  17. ROWASA [Concomitant]
     Indication: PRODUCT USED FOR UNKNOWN INDICATION
  18. TORSEMIDE [Concomitant]
     Indication: PRODUCT USED FOR UNKNOWN INDICATION
  19. LOVENOX [Concomitant]
     Indication: PRODUCT USED FOR UNKNOWN INDICATION

REACTIONS (12)
  - Fluid retention [Unknown]
  - Therapeutic response unexpected [Unknown]
  - Dry skin [Not Recovered/Not Resolved]
  - Rash generalised [Unknown]
  - Rash pruritic [Not Recovered/Not Resolved]
  - Rash [Recovered/Resolved]
  - Rash pruritic [Not Recovered/Not Resolved]
  - Rash [Unknown]
  - Injection site pruritus [Unknown]
  - Dermatitis acneiform [Not Recovered/Not Resolved]
  - Skin haemorrhage [Not Recovered/Not Resolved]
  - Skin atrophy [Not Recovered/Not Resolved]
